FAERS Safety Report 25888058 (Version 2)
Quarter: 2025Q4

REPORT INFORMATION
  Report Type: Report from Study
  Country: US (occurrence: US)
  Receive Date: 20251007
  Receipt Date: 20251009
  Transmission Date: 20260118
  Serious: Yes (Death, Hospitalization)
  Sender: ULTRAGENYX PHARMACEUTICAL
  Company Number: US-20250926-af92ca

PATIENT
  Age: 30 Year
  Sex: Male
  Weight: 41.69 kg

DRUGS (2)
  1. MEPSEVII [Suspect]
     Active Substance: VESTRONIDASE ALFA-VJBK
     Indication: Mucopolysaccharidosis
     Dosage: 10 MG / 5 ML SDV 1 EA, QOW
     Dates: start: 20181030
  2. MEPSEVII [Suspect]
     Active Substance: VESTRONIDASE ALFA-VJBK
     Dosage: 10 MG / 5 ML SDV 1 EA, QOW
     Dates: start: 20250911

REACTIONS (3)
  - Cardiac arrest [Fatal]
  - Intestinal obstruction [Unknown]
  - Pulmonary embolism [Unknown]

NARRATIVE: CASE EVENT DATE: 20250926
